FAERS Safety Report 23495324 (Version 1)
Quarter: 2024Q1

REPORT INFORMATION
  Report Type: Report from Study
  Country: US (occurrence: US)
  Receive Date: 20240207
  Receipt Date: 20240207
  Transmission Date: 20240409
  Serious: Yes (Other)
  Sender: FDA-Public Use
  Company Number: US-ABBVIE-5621927

PATIENT
  Sex: Female

DRUGS (1)
  1. HUMIRA [Suspect]
     Active Substance: ADALIMUMAB
     Indication: Product used for unknown indication
     Route: 058

REACTIONS (5)
  - Osteitis deformans [Recovering/Resolving]
  - Osteochondrosis [Recovering/Resolving]
  - Hypertension [Recovering/Resolving]
  - Bone disorder [Recovering/Resolving]
  - Rheumatoid arthritis [Recovering/Resolving]
